FAERS Safety Report 17672554 (Version 1)
Quarter: 2020Q2

REPORT INFORMATION
  Report Type: Other
  Country: US (occurrence: US)
  Receive Date: 20200415
  Receipt Date: 20200415
  Transmission Date: 20200713
  Serious: No
  Sender: FDA-Public Use
  Company Number: US-ALKERMES INC.-ALK-2019-004418

PATIENT
  Age: 58 Year
  Sex: Female

DRUGS (1)
  1. VIVITROL [Suspect]
     Active Substance: NALTREXONE
     Indication: ALCOHOLISM
     Dosage: 300 MG, QMO
     Route: 058
     Dates: start: 20181213

REACTIONS (5)
  - Underdose [Not Recovered/Not Resolved]
  - Influenza like illness [Unknown]
  - Abdominal pain upper [Unknown]
  - Incorrect route of product administration [Not Recovered/Not Resolved]
  - Asthenia [Unknown]

NARRATIVE: CASE EVENT DATE: 20181213
